FAERS Safety Report 24646132 (Version 1)
Quarter: 2024Q4

REPORT INFORMATION
  Report Type: Spontaneous
  Country: US (occurrence: US)
  Receive Date: 20241121
  Receipt Date: 20241121
  Transmission Date: 20250114
  Serious: No
  Sender: COLLEGIUM PHARMACEUTICAL
  Company Number: US-COLLEGIUM PHARMACEUTICAL, INC.-20240400258

PATIENT
  Age: 51 Year
  Sex: Female

DRUGS (3)
  1. BELBUCA [Suspect]
     Active Substance: BUPRENORPHINE HYDROCHLORIDE
     Indication: Product used for unknown indication
     Dosage: 300 MICROGRAM, UNKNOWN
     Route: 002
  2. BELBUCA [Suspect]
     Active Substance: BUPRENORPHINE HYDROCHLORIDE
     Dosage: 450 MICROGRAM, UNKNOWN
     Route: 002
     Dates: start: 2024
  3. ACECLOFENAC\ACETAMINOPHEN [Concomitant]
     Active Substance: ACECLOFENAC\ACETAMINOPHEN
     Indication: Product used for unknown indication
     Dosage: 100 MILLIGRAM, BID
     Route: 065

REACTIONS (2)
  - Tinnitus [Unknown]
  - Therapeutic response decreased [Unknown]

NARRATIVE: CASE EVENT DATE: 20240101
